FAERS Safety Report 19190522 (Version 1)
Quarter: 2021Q2

REPORT INFORMATION
  Report Type: Spontaneous
  Country: US (occurrence: US)
  Receive Date: 20210428
  Receipt Date: 20210428
  Transmission Date: 20210717
  Serious: No
  Sender: FDA-Public Use
  Company Number: US-009507513-2103USA007938

PATIENT
  Age: 78 Year
  Sex: Male

DRUGS (5)
  1. MARAVIROC [Concomitant]
     Active Substance: MARAVIROC
     Indication: PROGRESSIVE MULTIFOCAL LEUKOENCEPHALOPATHY
     Dosage: 300 MG TWICE DAILY
  2. KEYTRUDA [Suspect]
     Active Substance: PEMBROLIZUMAB
     Indication: PROGRESSIVE MULTIPLE SCLEROSIS
     Dosage: 200 MILLIGRAM, INTRAVENOUS INFUSION
     Route: 042
  3. MEFLOQUINE [Concomitant]
     Active Substance: MEFLOQUINE
     Indication: PROGRESSIVE MULTIFOCAL LEUKOENCEPHALOPATHY
     Dosage: 250 MG DAILY FOR 3 DAYS
  4. MEFLOQUINE [Concomitant]
     Active Substance: MEFLOQUINE
     Dosage: 250 MG WEEKLY
  5. MIRTAZAPINE. [Concomitant]
     Active Substance: MIRTAZAPINE
     Indication: PROGRESSIVE MULTIFOCAL LEUKOENCEPHALOPATHY
     Dosage: 30 MG DAILY

REACTIONS (1)
  - Off label use [Unknown]
